FAERS Safety Report 9455396 (Version 1)
Quarter: 2013Q3

REPORT INFORMATION
  Report Type: Spontaneous
  Country: ES (occurrence: ES)
  Receive Date: 20130813
  Receipt Date: 20130813
  Transmission Date: 20140515
  Serious: Yes (Other)
  Sender: FDA-Public Use
  Company Number: PHHY2013ES085577

PATIENT
  Age: 52 Year
  Sex: Male

DRUGS (2)
  1. ZOMETA [Suspect]
     Indication: METASTATIC RENAL CELL CARCINOMA
     Dosage: UNK UKN, UNK
     Dates: start: 201002, end: 201111
  2. SUTENT [Suspect]
     Indication: METASTATIC RENAL CELL CARCINOMA
     Dosage: UNK UKN, UNK
     Dates: start: 201002, end: 201111

REACTIONS (6)
  - Palmar-plantar erythrodysaesthesia syndrome [Unknown]
  - Malignant neoplasm progression [Unknown]
  - Metastatic renal cell carcinoma [Unknown]
  - Rash [Unknown]
  - Hypertriglyceridaemia [Unknown]
  - Asthenia [Unknown]
